FAERS Safety Report 6612277-2 (Version None)
Quarter: 2010Q1

REPORT INFORMATION
  Report Type: 
  Country: None (occurrence: None)
  Receive Date: 20100303
  Receipt Date: 20100222
  Transmission Date: 20100710
  Serious: Yes (Other)
  Sender: FDA-Public Use
  Company Number: CHPA2010BE04061

PATIENT
  Age: 52 Year
  Sex: Male

DRUGS (1)
  1. OTRIVIN [Suspect]
     Indication: NASAL CONGESTION
     Dosage: 1 TO 3 ATOMIZATIONS, QD
     Route: 045
     Dates: start: 20090101

REACTIONS (1)
  - DRUG DEPENDENCE [None]
